FAERS Safety Report 9146142 (Version 1)
Quarter: 2013Q1

REPORT INFORMATION
  Report Type: Spontaneous
  Country: JP (occurrence: JP)
  Receive Date: 20130307
  Receipt Date: 20130307
  Transmission Date: 20140127
  Serious: Yes (Hospitalization, Other)
  Sender: FDA-Public Use
  Company Number: PHHY2013JP020072

PATIENT
  Sex: Female

DRUGS (8)
  1. CERTICAN [Suspect]
     Indication: RENAL TRANSPLANT
     Dosage: 0.5 MG IN MORNING 0.25 MG IN EVENINING
     Route: 048
  2. CERTICAN [Suspect]
     Dosage: 0.5 MG IN MORNING 0.5 MG IN EVENINING
     Route: 048
  3. TASIGNA [Suspect]
     Indication: CHRONIC MYELOID LEUKAEMIA
     Dosage: 400 MG, QD
  4. CELLCEPT [Concomitant]
     Indication: RENAL TRANSPLANT
     Dosage: UNK UKN, UNK
     Route: 048
     Dates: start: 2012
  5. MEDROL [Concomitant]
     Indication: RENAL TRANSPLANT
     Dosage: UNK UKN, UNK
     Route: 048
     Dates: start: 2012
  6. PROGRAF [Concomitant]
     Indication: RENAL TRANSPLANT
     Dosage: UNK UKN, UNK
     Route: 048
     Dates: start: 2012
  7. LASIX [Concomitant]
     Dosage: 60 MG, UNK
     Route: 048
  8. ALDACTONE A [Concomitant]
     Dosage: UNK UKN, UNK
     Route: 048

REACTIONS (6)
  - Musculoskeletal stiffness [Recovered/Resolved]
  - Myalgia [Recovered/Resolved]
  - Oedema [Unknown]
  - Dysstasia [Unknown]
  - Immunosuppressant drug level increased [Unknown]
  - Blood uric acid increased [Unknown]
